FAERS Safety Report 22251861 (Version 2)
Quarter: 2023Q2

REPORT INFORMATION
  Report Type: Report from Study
  Country: CH (occurrence: CH)
  Receive Date: 20230425
  Receipt Date: 20230510
  Transmission Date: 20230721
  Serious: Yes (Hospitalization)
  Sender: FDA-Public Use
  Company Number: CH-ABBVIE-4738548

PATIENT
  Age: 74 Year
  Sex: Male

DRUGS (5)
  1. CARBIDOPA\LEVODOPA [Suspect]
     Active Substance: CARBIDOPA\LEVODOPA
     Indication: Parkinson^s disease
     Dosage: MD: 2.5 ML, CRD: 2.1 ML/H, ED: 0.5 ML;
     Route: 050
     Dates: start: 20230201, end: 20230419
  2. CARBIDOPA\LEVODOPA [Suspect]
     Active Substance: CARBIDOPA\LEVODOPA
     Dosage: MD: 2.0 ML, CRD: 1.6 ML/H, ED: 0.5 ML;
     Route: 050
     Dates: start: 20230421
  3. CARBIDOPA\LEVODOPA [Suspect]
     Active Substance: CARBIDOPA\LEVODOPA
     Dosage: MD: 2.0 ML, CRD: 1.8 ML/H, ED: 0.5 ML;
     Route: 050
     Dates: start: 20230419, end: 20230419
  4. CARBIDOPA\LEVODOPA [Suspect]
     Active Substance: CARBIDOPA\LEVODOPA
     Dosage: MD: 2.0 ML, CRD: 1.7 ML/H, ED: 0.5 ML;
     Route: 050
     Dates: start: 20230419, end: 20230421
  5. CARBIDOPA\LEVODOPA [Suspect]
     Active Substance: CARBIDOPA\LEVODOPA
     Route: 050
     Dates: start: 20160829

REACTIONS (12)
  - Pneumonia aspiration [Not Recovered/Not Resolved]
  - Dysphagia [Recovering/Resolving]
  - Freezing phenomenon [Not Recovered/Not Resolved]
  - Dyskinesia [Not Recovered/Not Resolved]
  - Hyperkinesia [Not Recovered/Not Resolved]
  - Akinesia [Not Recovered/Not Resolved]
  - Chills [Not Recovered/Not Resolved]
  - General physical health deterioration [Not Recovered/Not Resolved]
  - Walking aid user [Not Recovered/Not Resolved]
  - Fatigue [Recovering/Resolving]
  - Rehabilitation therapy [Unknown]
  - Hypokinesia [Unknown]

NARRATIVE: CASE EVENT DATE: 20230316
